FAERS Safety Report 8684206 (Version 2)
Quarter: 2013Q2

REPORT INFORMATION
  Report Type: Spontaneous
  Country: US (occurrence: US)
  Receive Date: 20120726
  Receipt Date: 20130529
  Transmission Date: 20140414
  Serious: Yes (Hospitalization, Other)
  Sender: FDA-Public Use
  Company Number: AS-ASTRAZENECA-2010SE19994

PATIENT
  Age: 48 Year
  Sex: Female

DRUGS (27)
  1. SEROQUEL [Suspect]
     Indication: BIPOLAR I DISORDER
     Route: 048
  2. SEROQUEL [Interacting]
     Indication: PSYCHOTIC DISORDER
     Route: 048
  3. SEROQUEL [Interacting]
     Indication: HALLUCINATION
     Route: 048
  4. SEROQUEL [Interacting]
     Indication: BIPOLAR I DISORDER
     Route: 048
  5. SEROQUEL [Interacting]
     Indication: PSYCHOTIC DISORDER
     Route: 048
  6. SEROQUEL [Interacting]
     Indication: HALLUCINATION
     Route: 048
  7. SEROQUEL [Interacting]
     Indication: BIPOLAR I DISORDER
     Route: 048
     Dates: start: 201112
  8. SEROQUEL [Interacting]
     Indication: PSYCHOTIC DISORDER
     Route: 048
     Dates: start: 201112
  9. SEROQUEL [Interacting]
     Indication: HALLUCINATION
     Route: 048
     Dates: start: 201112
  10. SEROQUEL [Interacting]
     Indication: BIPOLAR I DISORDER
     Route: 048
  11. SEROQUEL [Interacting]
     Indication: PSYCHOTIC DISORDER
     Route: 048
  12. SEROQUEL [Interacting]
     Indication: HALLUCINATION
     Route: 048
  13. SEROQUEL [Interacting]
     Indication: BIPOLAR I DISORDER
     Route: 048
  14. SEROQUEL [Interacting]
     Indication: PSYCHOTIC DISORDER
     Route: 048
  15. SEROQUEL [Interacting]
     Indication: HALLUCINATION
     Route: 048
  16. MIGRAINE MEDICATION [Interacting]
  17. GEODON [Suspect]
  18. CONCERTA [Concomitant]
  19. KLONOPIN [Concomitant]
  20. KLONOPIN [Concomitant]
  21. PROZAC [Concomitant]
  22. AMBIEN [Concomitant]
     Dosage: 2-3 TIMES PER WEEK AS NEEDED
  23. LYRICA [Concomitant]
     Indication: MUSCLE SPASMS
  24. PROBIOTIC [Concomitant]
  25. NAMENDA [Concomitant]
     Dosage: 10 BID
  26. EXELON [Concomitant]
     Indication: NERVOUS SYSTEM DISORDER
  27. ANTIPSYCHOTICS [Concomitant]

REACTIONS (38)
  - Drug interaction [Unknown]
  - Migraine [Unknown]
  - Cataract [Unknown]
  - Hallucination, visual [Recovered/Resolved]
  - Homicidal ideation [Unknown]
  - Hallucination [Unknown]
  - Vomiting [Unknown]
  - Malaise [Unknown]
  - Upper respiratory tract infection [Unknown]
  - Gastric disorder [Unknown]
  - Urinary tract infection [Unknown]
  - Cystitis [Unknown]
  - Weight decreased [Unknown]
  - Urethral stenosis [Unknown]
  - Dementia [Unknown]
  - Enteritis infectious [Unknown]
  - Hallucinations, mixed [Unknown]
  - Feeling abnormal [Unknown]
  - Persecutory delusion [Unknown]
  - Delusional disorder, unspecified type [Unknown]
  - Muscle spasms [Unknown]
  - Stress [Unknown]
  - Eating disorder [Unknown]
  - Gait disturbance [Unknown]
  - Insomnia [Unknown]
  - Mania [Unknown]
  - Clostridium difficile infection [Unknown]
  - Thinking abnormal [Unknown]
  - Headache [Unknown]
  - Confusional state [Unknown]
  - Hypomania [Unknown]
  - Body height decreased [Unknown]
  - Dissociative identity disorder [Unknown]
  - Nervous system disorder [Unknown]
  - Therapeutic response unexpected [Unknown]
  - Back injury [Unknown]
  - Intentional drug misuse [Unknown]
  - Drug dose omission [Unknown]
